FAERS Safety Report 12610426 (Version 2)
Quarter: 2016Q3

REPORT INFORMATION
  Report Type: Report from Study
  Country: BR (occurrence: BR)
  Receive Date: 20160801
  Receipt Date: 20160812
  Transmission Date: 20161109
  Serious: No
  Sender: FDA-Public Use
  Company Number: PHHY2016BR104782

PATIENT
  Sex: Male
  Weight: 105 kg

DRUGS (3)
  1. FRISIUM [Concomitant]
     Active Substance: CLOBAZAM
     Indication: SEIZURE
     Dosage: 1 DF, QD
     Route: 048
     Dates: start: 201401
  2. TEGRETOL [Suspect]
     Active Substance: CARBAMAZEPINE
     Indication: BRAIN NEOPLASM
     Dosage: 3 DF, QD
     Route: 048
     Dates: start: 201401
  3. DEPAKOTE [Concomitant]
     Active Substance: DIVALPROEX SODIUM
     Indication: SEIZURE
     Dosage: 3 DF, QD
     Route: 048
     Dates: start: 201401

REACTIONS (1)
  - Product use issue [Unknown]
